FAERS Safety Report 11513824 (Version 1)
Quarter: 2015Q3

REPORT INFORMATION
  Report Type: Spontaneous
  Country: US (occurrence: US)
  Receive Date: 20150903
  Receipt Date: 20150903
  Transmission Date: 20151125
  Serious: No
  Sender: FDA-Public Use
  Company Number: US-ELI_LILLY_AND_COMPANY-US201209006510

PATIENT
  Age: 55 Year
  Sex: Female
  Weight: 70.3 kg

DRUGS (6)
  1. GLUCOTROL [Concomitant]
     Active Substance: GLIPIZIDE
     Indication: DIABETES MELLITUS
  2. ALTACE [Concomitant]
     Active Substance: RAMIPRIL
  3. GLUCOPHAGE [Concomitant]
     Active Substance: METFORMIN HYDROCHLORIDE
     Indication: DIABETES MELLITUS
  4. CYMBALTA [Suspect]
     Active Substance: DULOXETINE HYDROCHLORIDE
     Indication: DEPRESSION
     Dosage: 60 MG, QD
     Dates: start: 201112
  5. MAGNESIUM [Concomitant]
     Active Substance: MAGNESIUM
     Indication: CONSTIPATION
  6. XANAX [Concomitant]
     Active Substance: ALPRAZOLAM

REACTIONS (4)
  - Constipation [Unknown]
  - Weight increased [Unknown]
  - Eating disorder [Unknown]
  - Glycosylated haemoglobin increased [Unknown]
